FAERS Safety Report 4663292-X (Version None)
Quarter: 2005Q2

REPORT INFORMATION
  Report Type: 
  Country: None (occurrence: None)
  Receive Date: 20050513
  Receipt Date: 20050427
  Transmission Date: 20051028
  Serious: Yes (Other)
  Sender: FDA-Public Use
  Company Number: 2005BL002830

PATIENT
  Age: 33 Year
  Sex: Male
  Weight: 69 kg

DRUGS (9)
  1. MINIMS PREDNISOLONE SODIUM PHOSPHATE (PREDNISOLONE SODIUM PHOSPHATE) [Suspect]
     Indication: EYE PRURITUS
     Dosage: 2 DROP; 4 TIMES A DAY
  2. METFORMIN [Concomitant]
  3. GLICLAZIDE [Concomitant]
  4. LOSARTAN POTASSIUM [Concomitant]
  5. SERTRALINE HCL [Concomitant]
  6. HYDROCHLORIDE [Concomitant]
  7. CLONAZEPAM [Concomitant]
  8. DEXAMETHASONE [Concomitant]
  9. HYDROCORTISONE [Concomitant]

REACTIONS (10)
  - CUSHING'S SYNDROME [None]
  - DEPRESSED MOOD [None]
  - DIABETES MELLITUS NON-INSULIN-DEPENDENT [None]
  - FUNGAL SKIN INFECTION [None]
  - LIBIDO DECREASED [None]
  - MALAISE [None]
  - SELF-MEDICATION [None]
  - SOCIAL AVOIDANT BEHAVIOUR [None]
  - VISUAL ACUITY REDUCED [None]
  - WEIGHT INCREASED [None]
